FAERS Safety Report 17614787 (Version 1)
Quarter: 2020Q1

REPORT INFORMATION
  Report Type: Spontaneous
  Country: US (occurrence: US)
  Receive Date: 20200331
  Receipt Date: 20200331
  Transmission Date: 20200409
  Serious: Yes (Life-Threatening, Hospitalization)
  Sender: FDA-Public Use
  Company Number: None

PATIENT
  Age: 86 Year
  Sex: Male
  Weight: 97 kg

DRUGS (2)
  1. PERFLUTREN (PERFLUTREN LIPID MICROSPHERE INJ, 2ML) [Suspect]
     Active Substance: PERFLUTREN
  2. PERFLUTREN (PERFLUTREN LIPID MICROSPHERE INJ, 2ML) [Suspect]
     Active Substance: PERFLUTREN
     Indication: CARDIOVASCULAR DISORDER
     Dosage: ?          OTHER DOSE:ML;OTHER ROUTE:IV?
     Route: 042
     Dates: start: 20200316, end: 20200316

REACTIONS (7)
  - Anaphylactic reaction [None]
  - Urinary incontinence [None]
  - Hypotension [None]
  - Cardio-respiratory arrest [None]
  - Dizziness [None]
  - Apnoea [None]
  - Unresponsive to stimuli [None]

NARRATIVE: CASE EVENT DATE: 20200316
